FAERS Safety Report 5049207-3 (Version None)
Quarter: 2006Q3

REPORT INFORMATION
  Report Type: 
  Country: None (occurrence: None)
  Receive Date: 20060706
  Receipt Date: 20060621
  Transmission Date: 20061208
  Serious: Yes (Hospitalization)
  Sender: FDA-Public Use
  Company Number: 003#3#2006-00072

PATIENT
  Sex: Male

DRUGS (11)
  1. DEPONIT-5                   (GLYCERYL TRINITRATE) [Suspect]
     Indication: ANGINA PECTORIS
     Dosage: 5 MG
     Route: 062
     Dates: start: 20060517, end: 20060517
  2. AQUEOUS CREAM   (EMULSIFYING WAX, PARAFFIN, LIQUID, WHIE SOFT PARAFFIN [Concomitant]
  3. ASPIRIN [Concomitant]
  4. BISOPROLOL FUMARATE [Concomitant]
  5. DICLOFENAC [Concomitant]
  6. DOVOBET (CALCIPOTRIOL) [Concomitant]
  7. GTN (GLYCERYL TRINITRATE) [Concomitant]
  8. ISOSORBIDE MONONITRATE [Concomitant]
  9. MELOXICAM [Concomitant]
  10. PAROXETINE HCL [Concomitant]
  11. RAMIPRIL [Concomitant]

REACTIONS (5)
  - BLOOD PRESSURE INCREASED [None]
  - ERYTHEMA [None]
  - HEART RATE INCREASED [None]
  - HYPERHIDROSIS [None]
  - WHEEZING [None]
